FAERS Safety Report 6348632-8 (Version None)
Quarter: 2009Q3

REPORT INFORMATION
  Report Type: 
  Country: None (occurrence: None)
  Receive Date: 20090911
  Receipt Date: 20090831
  Transmission Date: 20100115
  Serious: Yes (Other)
  Sender: FDA-Public Use
  Company Number: US-PFIZER INC-2005067048

PATIENT
  Sex: Female

DRUGS (8)
  1. PROVERA [Suspect]
     Indication: HORMONE REPLACEMENT THERAPY
     Dosage: UNK
     Route: 048
  2. MEDROXYPROGESTERONE AND MEDROXYPROGESTERONE ACETATE [Suspect]
     Indication: HORMONE REPLACEMENT THERAPY
     Dosage: 2.5 MG, UNK
     Dates: start: 19970101, end: 20020101
  3. PREMARIN [Suspect]
     Indication: HORMONE REPLACEMENT THERAPY
     Dosage: 0.625 MG, UNK
     Route: 065
     Dates: start: 19970101, end: 20020101
  4. POTASSIUM [Concomitant]
     Indication: HYPERTENSION
     Dosage: UNK
  5. LASIX [Concomitant]
     Indication: HYPERTENSION
     Dosage: UNK
     Dates: start: 19970101
  6. L-THYROXIN [Concomitant]
     Indication: HYPOTHYROIDISM
     Dosage: UNK
     Dates: start: 19660101
  7. LEVOTHROID [Concomitant]
     Indication: HYPOTHYROIDISM
     Dosage: UNK
     Dates: start: 19660101
  8. VERAPAMIL [Concomitant]
     Indication: HYPERTENSION
     Dosage: UNK
     Dates: start: 19960101

REACTIONS (1)
  - BREAST CANCER FEMALE [None]
